FAERS Safety Report 15449714 (Version 2)
Quarter: 2018Q4

REPORT INFORMATION
  Report Type: Spontaneous
  Country: DE (occurrence: DE)
  Receive Date: 20181001
  Receipt Date: 20181004
  Transmission Date: 20190204
  Serious: Yes (Hospitalization)
  Sender: FDA-Public Use
  Company Number: DE-BAUSCH-BL-2018-026439

PATIENT
  Age: 81 Year
  Sex: Female
  Weight: 76.5 kg

DRUGS (11)
  1. HYDROCHLOROTHIAZIDE/RAMIPRIL [Suspect]
     Active Substance: HYDROCHLOROTHIAZIDE\RAMIPRIL
     Route: 048
     Dates: start: 1999
  2. SIMVABETA [Concomitant]
     Active Substance: SIMVASTATIN
     Indication: DYSLIPIDAEMIA
     Route: 048
     Dates: start: 2000
  3. RAMIPLUS AL [Concomitant]
     Active Substance: HYDROCHLOROTHIAZIDE\RAMIPRIL
     Indication: HYPERTENSION
     Route: 048
     Dates: start: 1999
  4. PENTAERITHRITYL TETRANITRATE [Suspect]
     Active Substance: PENTAERYTHRITOL TETRANITRATE
     Indication: CORONARY ARTERY DISEASE
     Route: 048
     Dates: start: 2002, end: 20081114
  5. ACETYLSALICYLIC ACID [Concomitant]
     Active Substance: ASPIRIN
     Indication: CORONARY ARTERY DISEASE
     Route: 048
     Dates: start: 1990, end: 20081114
  6. HYDROCHLOROTHIAZIDE/RAMIPRIL [Suspect]
     Active Substance: HYDROCHLOROTHIAZIDE\RAMIPRIL
     Indication: HYPERTENSION
     Route: 048
     Dates: start: 1999
  7. DOUBLE HEART GARLIC CAPSULES WITH MISTEL PLUS WHITE [Concomitant]
     Indication: ARTHRALGIA
     Dosage: DAILY DOSE: 1400 MG MILLIGRAM(S) EVERY DAY
     Route: 048
     Dates: start: 2006, end: 20081114
  8. BISOPROLOL FUMARATE. [Suspect]
     Active Substance: BISOPROLOL FUMARATE
     Indication: HYPERTENSION
     Dosage: DOSEN/APPLIKATION: 5MG-0-2.5MG
     Route: 048
     Dates: start: 2000, end: 20081113
  9. SELEGILINE HYDROCHLORIDE. [Suspect]
     Active Substance: SELEGILINE HYDROCHLORIDE
     Indication: PARKINSON^S DISEASE
     Dosage: DAILY DOSE: 10 MG MILLIGRAM(S) EVERY DAY
     Route: 048
     Dates: start: 2007
  10. ROPINIROLE HYDROCHLORIDE. [Suspect]
     Active Substance: ROPINIROLE HYDROCHLORIDE
     Indication: PARKINSON^S DISEASE
     Route: 048
     Dates: start: 2007
  11. MAGNETRANS FORTE [Concomitant]
     Active Substance: MAGNESIUM OXIDE
     Indication: PARKINSON^S DISEASE
     Route: 048
     Dates: start: 2007, end: 20081114

REACTIONS (2)
  - Bradycardia [Recovered/Resolved]
  - Hypotension [Recovered/Resolved]

NARRATIVE: CASE EVENT DATE: 20081111
